FAERS Safety Report 16767068 (Version 1)
Quarter: 2019Q3

REPORT INFORMATION
  Report Type: Spontaneous
  Country: DE (occurrence: DE)
  Receive Date: 20190903
  Receipt Date: 20190903
  Transmission Date: 20191005
  Serious: Yes (Hospitalization, Other)
  Sender: FDA-Public Use
  Company Number: DE-MYLANLABS-2019M1081313

PATIENT
  Sex: Female
  Weight: 53.5 kg

DRUGS (1)
  1. MACROGOL [Suspect]
     Active Substance: POLYETHYLENE GLYCOLS
     Indication: COLONOSCOPY
     Dosage: UNK
     Route: 065

REACTIONS (18)
  - Lactose intolerance [Unknown]
  - Circulatory collapse [Unknown]
  - Nausea [Unknown]
  - Concomitant disease aggravated [Unknown]
  - Subileus [Unknown]
  - Tinnitus [Unknown]
  - Ileus [Unknown]
  - Asthma [Unknown]
  - Hypotension [Unknown]
  - Tachycardia [Unknown]
  - Gluten sensitivity [Unknown]
  - Abdominal pain [Unknown]
  - Oedema [Unknown]
  - Histamine intolerance [Unknown]
  - Arrhythmia [Unknown]
  - Rhinorrhoea [Unknown]
  - Pruritus [Unknown]
  - Fructose intolerance [Unknown]

NARRATIVE: CASE EVENT DATE: 201709
